FAERS Safety Report 14245805 (Version 1)
Quarter: 2017Q4

REPORT INFORMATION
  Report Type: Report from Study
  Country: FR (occurrence: FR)
  Receive Date: 20171204
  Receipt Date: 20171204
  Transmission Date: 20180321
  Serious: Yes (Hospitalization, Disabling, Other)
  Sender: FDA-Public Use
  Company Number: FR-ROCHE-2031493

PATIENT
  Age: 67 Year
  Sex: Female

DRUGS (1)
  1. RITUXIMAB. [Suspect]
     Active Substance: RITUXIMAB
     Indication: IMMUNE THROMBOCYTOPENIC PURPURA
     Route: 065
     Dates: start: 20100819

REACTIONS (10)
  - Pulmonary hypertension [Recovered/Resolved with Sequelae]
  - Arthritis [Recovered/Resolved]
  - Autoimmune disorder [Unknown]
  - Thrombophlebitis superficial [Recovered/Resolved]
  - Stress fracture [Unknown]
  - Bronchitis [Recovered/Resolved]
  - Escherichia urinary tract infection [Recovered/Resolved]
  - Rhinitis [Recovered/Resolved]
  - Crystal arthropathy [Recovered/Resolved]
  - Pulmonary embolism [Recovered/Resolved with Sequelae]

NARRATIVE: CASE EVENT DATE: 201404
